FAERS Safety Report 9523708 (Version 1)
Quarter: 2013Q3

REPORT INFORMATION
  Report Type: Spontaneous
  Country: CA (occurrence: CA)
  Receive Date: 20130913
  Receipt Date: 20130913
  Transmission Date: 20140515
  Serious: Yes (Other)
  Sender: FDA-Public Use
  Company Number: CA-JNJFOC-20130902886

PATIENT
  Age: 63 Year
  Sex: Female
  Weight: 67.13 kg

DRUGS (2)
  1. TYLENOL EXTRA STRENGTH [Suspect]
     Route: 065
  2. TYLENOL EXTRA STRENGTH [Suspect]
     Indication: PAIN
     Route: 065

REACTIONS (2)
  - Stomatitis [Recovered/Resolved]
  - Bone pain [Recovered/Resolved]
